FAERS Safety Report 5230520-1 (Version None)
Quarter: 2007Q1

REPORT INFORMATION
  Report Type: 
  Country: None (occurrence: None)
  Receive Date: 20070202
  Receipt Date: 20070129
  Transmission Date: 20070707
  Serious: Yes (Life-Threatening, Hospitalization, Other)
  Sender: FDA-Public Use
  Company Number: 2006SP004547

PATIENT
  Age: 81 Year
  Sex: Female
  Weight: 76 kg

DRUGS (13)
  1. TEMODAL [Suspect]
     Indication: METASTATIC MALIGNANT MELANOMA
     Dosage: 280 MG; QD, PO
     Route: 048
     Dates: start: 20060929, end: 20061018
  2. CLAFORAN [Concomitant]
  3. GENTAMICIN [Concomitant]
  4. FORTUM [Concomitant]
  5. AMIKLIN [Concomitant]
  6. TICARPEN [Concomitant]
  7. PEFLACIN [Concomitant]
  8. .. [Concomitant]
  9. CEFTRIAXONE [Concomitant]
  10. NEUPOGEN [Concomitant]
  11. .. [Concomitant]
  12. CETIRIZINE HCL [Concomitant]
  13. .. [Concomitant]

REACTIONS (9)
  - BACILLUS INFECTION [None]
  - BACTERIAL INFECTION [None]
  - BLOOD CULTURE POSITIVE [None]
  - EPISTAXIS [None]
  - FEBRILE NEUTROPENIA [None]
  - LIVER DISORDER [None]
  - PURPURA [None]
  - RASH [None]
  - THROMBOCYTOPENIA [None]
